FAERS Safety Report 6912069-0 (Version None)
Quarter: 2010Q3

REPORT INFORMATION
  Report Type: 
  Country: None (occurrence: None)
  Receive Date: 20100806
  Receipt Date: 20071119
  Transmission Date: 20110219
  Serious: Yes (Other)
  Sender: FDA-Public Use
  Company Number: US-PFIZER INC-2007094800

PATIENT
  Sex: Male
  Weight: 117.9 kg

DRUGS (1)
  1. DILANTIN [Suspect]
     Indication: CONVULSION
     Dates: start: 19700101

REACTIONS (3)
  - ANXIETY [None]
  - CONVULSION [None]
  - WEIGHT INCREASED [None]
